FAERS Safety Report 7325592-4 (Version None)
Quarter: 2011Q1

REPORT INFORMATION
  Report Type: 
  Country: None (occurrence: None)
  Receive Date: 20110302
  Receipt Date: 20110222
  Transmission Date: 20110831
  Serious: Yes (Death)
  Sender: FDA-Public Use
  Company Number: IT-PFIZER INC-IT-WYE-G04180409

PATIENT
  Sex: Female

DRUGS (14)
  1. AMINO ACIDS NOS [Concomitant]
  2. VENACTONE [Concomitant]
  3. ALMARYTM [Concomitant]
  4. ANTRA [Concomitant]
  5. ALDACTONE [Concomitant]
     Route: 065
  6. DIFLUCAN [Suspect]
     Dosage: 100 MG, 1X/DAY
     Route: 065
     Dates: start: 20090724, end: 20090724
  7. ENTEROGERMINA [Concomitant]
  8. CALCIUM-SANDOZ [Concomitant]
  9. LASIX [Concomitant]
  10. CLEXANE [Concomitant]
     Route: 065
  11. CATAPRESAN [Concomitant]
  12. FERROGRAD C [Concomitant]
  13. TAZOCIN [Suspect]
     Dosage: 4.5 G, 3X/DAY
     Route: 042
     Dates: start: 20090727, end: 20090727
  14. CUBICIN [Suspect]
     Dosage: 420 MG, 1X/DAY
     Route: 065
     Dates: start: 20090723, end: 20090723

REACTIONS (3)
  - ILEUS PARALYTIC [None]
  - GASTROENTERITIS CLOSTRIDIAL [None]
  - MEGACOLON [None]
